FAERS Safety Report 8273713-1 (Version None)
Quarter: 2012Q2

REPORT INFORMATION
  Report Type: 
  Country: None (occurrence: None)
  Receive Date: 20120409
  Receipt Date: 20120409
  Transmission Date: 20120825
  Serious: No
  Sender: FDA-Public Use
  Company Number: None

PATIENT
  Age: 84 Year
  Sex: Female

DRUGS (1)
  1. SPIRIVA [Suspect]
     Dosage: INHALE 1 CAPSULE DAILY
     Route: 055

REACTIONS (1)
  - CAPSULE PHYSICAL ISSUE [None]
